FAERS Safety Report 21259423 (Version 1)
Quarter: 2022Q3

REPORT INFORMATION
  Report Type: Spontaneous
  Country: US (occurrence: None)
  Receive Date: 20220825
  Receipt Date: 20220825
  Transmission Date: 20221026
  Serious: Yes (Other)
  Sender: FDA-Public Use
  Company Number: None

PATIENT
  Age: 68 Year
  Sex: Female

DRUGS (22)
  1. COPAXONE [Suspect]
     Active Substance: GLATIRAMER ACETATE
     Indication: Multiple sclerosis
     Dosage: FREQUENCY : 3 TIMES A WEEK;?
     Route: 058
  2. BACLOFEN [Concomitant]
     Active Substance: BACLOFEN
  3. Dilantin 100 mg tablets [Concomitant]
  4. Zanaflex 4 mg tablets [Concomitant]
  5. Amlodipine Besylate 10 mg tablets [Concomitant]
  6. DIAZEPAM [Concomitant]
     Active Substance: DIAZEPAM
  7. Estradiol 0.1% Vaginal Cream [Concomitant]
  8. Fluticasone 50 mcg Nasal Spray [Concomitant]
  9. Levothyroxine 100 mcg tablets [Concomitant]
  10. Miralax 3350 NF Powder [Concomitant]
  11. Restoril 30 mg [Concomitant]
  12. VENTOLIN HFA [Concomitant]
     Active Substance: ALBUTEROL SULFATE
  13. Vitamin C 1000 mg [Concomitant]
  14. Vitamin D 1000 unit capsules [Concomitant]
  15. ACETAMINOPHEN [Concomitant]
     Active Substance: ACETAMINOPHEN
  16. Senna Plus 8.6 mg/ 50 mg [Concomitant]
  17. L- Arginine 1000 mg [Concomitant]
  18. LOSARTAN [Concomitant]
     Active Substance: LOSARTAN
  19. Multi-vitamin with Lutein [Concomitant]
  20. Lycopene Tablets [Concomitant]
  21. Lutein 20 mg soft gels [Concomitant]
  22. Co-Q10 100 mg soft gels [Concomitant]

REACTIONS (1)
  - Chest pain [None]

NARRATIVE: CASE EVENT DATE: 20220825
